FAERS Safety Report 9164093 (Version 3)
Quarter: 2013Q2

REPORT INFORMATION
  Report Type: Spontaneous
  Country: GB (occurrence: GB)
  Receive Date: 20130315
  Receipt Date: 20130416
  Transmission Date: 20140414
  Serious: Yes (Hospitalization, Other)
  Sender: FDA-Public Use
  Company Number: GB-BRISTOL-MYERS SQUIBB COMPANY-17452194

PATIENT
  Age: 70 Year
  Sex: Male

DRUGS (10)
  1. ABILIFY TABS 5 MG [Suspect]
     Indication: BIPOLAR DISORDER
     Dosage: INTERR 2012?RES AUTUMN 2012
     Route: 048
     Dates: start: 201004
  2. MIRTAZAPINE [Suspect]
     Indication: BIPOLAR DISORDER
     Dosage: INTERR 2012?RES AUTUMN 2012
     Dates: start: 20121231
  3. OLANZAPINE [Suspect]
     Indication: HYPOMANIA
     Route: 048
     Dates: start: 20120810, end: 20121101
  4. WARFARIN [Concomitant]
     Dates: start: 201301
  5. BISOPROLOL [Concomitant]
  6. RAMIPRIL [Concomitant]
  7. LEVOTHYROXINE [Concomitant]
  8. FOLIC ACID [Concomitant]
  9. LANSOPRAZOLE [Concomitant]
  10. ATORVASTATIN [Concomitant]

REACTIONS (2)
  - Embolism venous [Unknown]
  - Drug ineffective [Unknown]
